FAERS Safety Report 7580575-4 (Version None)
Quarter: 2011Q2

REPORT INFORMATION
  Report Type: 
  Country: None (occurrence: None)
  Receive Date: 20110629
  Receipt Date: 20110621
  Transmission Date: 20111010
  Serious: Yes (Hospitalization)
  Sender: FDA-Public Use
  Company Number: A0933350A

PATIENT
  Age: 41 Year
  Sex: Female

DRUGS (1)
  1. TYKERB [Suspect]
     Dosage: 1250MG PER DAY
     Route: 065

REACTIONS (3)
  - BETA HAEMOLYTIC STREPTOCOCCAL INFECTION [None]
  - LACERATION [None]
  - LYMPHOEDEMA [None]
